FAERS Safety Report 18521649 (Version 2)
Quarter: 2020Q4

REPORT INFORMATION
  Report Type: Spontaneous
  Country: GB (occurrence: GB)
  Receive Date: 20201119
  Receipt Date: 20201128
  Transmission Date: 20210114
  Serious: No
  Sender: FDA-Public Use
  Company Number: GB-CELLTRION INC.-2020GB031701

PATIENT

DRUGS (1)
  1. REMSIMA [Suspect]
     Active Substance: INFLIXIMAB
     Indication: CROHN^S DISEASE
     Dosage: (PRE-FILLED PEN) 120 MG, EVERY WEEK
     Route: 058
     Dates: start: 202010

REACTIONS (3)
  - Ear infection [Unknown]
  - Off label use [Unknown]
  - Intentional dose omission [Unknown]
